FAERS Safety Report 12653053 (Version 1)
Quarter: 2016Q3

REPORT INFORMATION
  Report Type: Spontaneous
  Country: SE (occurrence: SE)
  Receive Date: 20160815
  Receipt Date: 20160815
  Transmission Date: 20161109
  Serious: Yes (Life-Threatening, Hospitalization)
  Sender: FDA-Public Use
  Company Number: SE-DEPOMED, INC.-SE-2016DEP011666

PATIENT
  Age: 34 Year
  Sex: Male

DRUGS (1)
  1. FENTANYL CITRATE. [Suspect]
     Active Substance: FENTANYL CITRATE
     Indication: PRODUCT USED FOR UNKNOWN INDICATION
     Dosage: UNK
     Route: 048

REACTIONS (4)
  - Toxicity to various agents [Recovered/Resolved]
  - Respiratory depression [Recovered/Resolved]
  - Miosis [Recovered/Resolved]
  - Apnoea [Recovered/Resolved]

NARRATIVE: CASE EVENT DATE: 2015
